FAERS Safety Report 10596211 (Version 3)
Quarter: 2015Q1

REPORT INFORMATION
  Report Type: Report from Study
  Country: JP (occurrence: JP)
  Receive Date: 20141120
  Receipt Date: 20150128
  Transmission Date: 20150720
  Serious: Yes (Death)
  Sender: FDA-Public Use
  Company Number: JP-PFIZER INC-2014317055

PATIENT
  Age: 59 Year
  Sex: Male
  Weight: 55 kg

DRUGS (17)
  1. CATLEP [Concomitant]
     Active Substance: INDOMETHACIN
     Dosage: UNK UNK, AS NEEDED
     Route: 062
     Dates: start: 20130203
  2. BROTIZOLAM [Concomitant]
     Active Substance: BROTIZOLAM
     Dosage: 0.25 MG, 1X/DAY
     Route: 048
     Dates: end: 20130214
  3. ADONA [Concomitant]
     Active Substance: CARBAZOCHROME SODIUM SULFONATE
     Dosage: 30 MG, 3X/DAY
     Dates: end: 20130209
  4. DECADRON [Concomitant]
     Active Substance: DEXAMETHASONE
     Dosage: 1 MG, 2X/DAY
     Route: 048
     Dates: end: 20130209
  5. THEO-DUR [Concomitant]
     Active Substance: THEOPHYLLINE ANHYDROUS
     Dosage: 100 MG, 2X/DAY
     Route: 048
     Dates: end: 20130209
  6. SEROQUEL [Concomitant]
     Active Substance: QUETIAPINE FUMARATE
     Dosage: 25 MG, 1X/DAY
     Route: 048
     Dates: start: 20130207, end: 20130207
  7. CALONAL [Concomitant]
     Active Substance: ACETAMINOPHEN
     Dosage: 400 MG, 4X/DAY
     Route: 048
  8. CODEINE PHOSPHATE [Concomitant]
     Active Substance: CODEINE PHOSPHATE
     Dosage: 20 MG, AS NEEDED
     Route: 048
  9. CARBOCISTEINE [Concomitant]
     Active Substance: CARBOCYSTEINE
     Dosage: 500 MG, 3X/DAY
     Route: 048
     Dates: end: 20130209
  10. ASTOMIN [Concomitant]
     Active Substance: DIMEMORFAN
     Dosage: 20 MG, 3X/DAY
     Route: 048
     Dates: end: 20130209
  11. XALKORI [Suspect]
     Active Substance: CRIZOTINIB
     Indication: NON-SMALL CELL LUNG CANCER
     Dosage: 250 MG, 2X/DAY
     Route: 048
     Dates: start: 20130130, end: 20130208
  12. ROHYPNOL ROCHE [Concomitant]
     Dosage: 1 MG, 1X/DAY
     Route: 048
     Dates: end: 20130214
  13. HOKUNALIN [Concomitant]
     Active Substance: TULOBUTEROL
     Dosage: 2 MG, 1X/DAY
     Route: 062
     Dates: start: 20130218
  14. LAC B [Concomitant]
     Active Substance: BIFIDOBACTERIUM SPP.
     Dosage: 1 G, 3X/DAY
     Route: 048
     Dates: start: 20130131, end: 20130204
  15. TRANSAMIN [Concomitant]
     Active Substance: TRANEXAMIC ACID
     Dosage: 250 MG, 3X/DAY
     Route: 048
     Dates: end: 20130209
  16. FAMOTIDINE. [Concomitant]
     Active Substance: FAMOTIDINE
     Dosage: 20 MG, 2X/DAY
     Route: 048
  17. SENNARIDE [Concomitant]
     Active Substance: SENNOSIDES A AND B
     Dosage: 24 MG, AS NEEDED
     Route: 048
     Dates: start: 20130203, end: 20130203

REACTIONS (2)
  - Non-small cell lung cancer [Fatal]
  - Disease progression [Fatal]
